FAERS Safety Report 14278445 (Version 1)
Quarter: 2017Q4

REPORT INFORMATION
  Report Type: Report from Study
  Country: US (occurrence: US)
  Receive Date: 20171212
  Receipt Date: 20171212
  Transmission Date: 20180321
  Serious: No
  Sender: FDA-Public Use
  Company Number: US-ALEXION PHARMACEUTICALS INC.-A201713399

PATIENT
  Age: 28 Year
  Sex: Female

DRUGS (2)
  1. SOLIRIS [Suspect]
     Active Substance: ECULIZUMAB
     Indication: PAROXYSMAL NOCTURNAL HAEMOGLOBINURIA
     Dosage: UNK, UNK
     Route: 042
  2. SOLIRIS [Suspect]
     Active Substance: ECULIZUMAB
     Dosage: UNK
     Route: 042

REACTIONS (8)
  - Monocyte count abnormal [Unknown]
  - Haematocrit abnormal [Unknown]
  - Red cell distribution width abnormal [Unknown]
  - Reticulocyte percentage abnormal [Unknown]
  - Red blood cell count abnormal [Unknown]
  - Red blood cell nucleated morphology present [Unknown]
  - Reticulocyte count abnormal [Unknown]
  - Haemoglobin decreased [Unknown]

NARRATIVE: CASE EVENT DATE: 20171016
